FAERS Safety Report 13776889 (Version 1)
Quarter: 2017Q3

REPORT INFORMATION
  Report Type: Spontaneous
  Country: US (occurrence: US)
  Receive Date: 20170721
  Receipt Date: 20170721
  Transmission Date: 20171127
  Serious: Yes (Other)
  Sender: FDA-Public Use
  Company Number: None

PATIENT
  Age: 56 Year
  Sex: Female
  Weight: 66.6 kg

DRUGS (1)
  1. VALACYCLOVIR TABLETS, USP 1 GRAM [Suspect]
     Active Substance: VALACYCLOVIR HYDROCHLORIDE
     Indication: HERPES VIRUS INFECTION
     Dosage: ?          OTHER STRENGTH:GM;QUANTITY:1 TABLET(S);?
     Route: 048
     Dates: start: 20170603, end: 20170717

REACTIONS (3)
  - Abdominal discomfort [None]
  - Product substitution issue [None]
  - Dyspepsia [None]

NARRATIVE: CASE EVENT DATE: 20170603
